FAERS Safety Report 4287403-3 (Version None)
Quarter: 2004Q1

REPORT INFORMATION
  Report Type: 
  Country: None (occurrence: None)
  Receive Date: 20040209
  Receipt Date: 20030620
  Transmission Date: 20041129
  Serious: No
  Sender: FDA-Public Use
  Company Number: US-GLAXOSMITHKLINE-A0413355A

PATIENT
  Age: 10 Year
  Sex: Male

DRUGS (1)
  1. PAXIL CR [Suspect]
     Route: 048
     Dates: end: 20030613

REACTIONS (2)
  - NAUSEA [None]
  - VOMITING [None]
